FAERS Safety Report 4320746-3 (Version None)
Quarter: 2004Q1

REPORT INFORMATION
  Report Type: 
  Country: None (occurrence: None)
  Receive Date: 20040322
  Receipt Date: 20040217
  Transmission Date: 20041129
  Serious: Yes (Hospitalization)
  Sender: FDA-Public Use
  Company Number: JP-ROCHE-359328

PATIENT
  Age: 5 Year
  Sex: Female
  Weight: 19 kg

DRUGS (9)
  1. TAMIFLU [Suspect]
     Route: 048
     Dates: start: 20040208, end: 20040209
  2. TAMIFLU [Suspect]
     Route: 048
     Dates: start: 20040209, end: 20040212
  3. BIOFERMIN [Concomitant]
     Route: 048
     Dates: start: 20040209, end: 20040212
  4. TRANSAMIN [Concomitant]
     Indication: UPPER RESPIRATORY TRACT INFLAMMATION
     Route: 048
     Dates: start: 20040208, end: 20040209
  5. LAC B [Concomitant]
     Route: 048
     Dates: start: 20040212, end: 20040213
  6. ACETAMINOPHEN [Concomitant]
     Indication: UPPER RESPIRATORY TRACT INFLAMMATION
     Route: 048
     Dates: start: 20040212, end: 20040213
  7. CHLORPHENIRAMINE MALEATE [Concomitant]
     Indication: UPPER RESPIRATORY TRACT INFLAMMATION
     Route: 048
     Dates: start: 20040212, end: 20040213
  8. ACETAMINOPHEN [Concomitant]
     Indication: PYREXIA
     Route: 054
     Dates: start: 20040209, end: 20040209
  9. ACETAMINOPHEN [Concomitant]
     Route: 048
     Dates: start: 20040208, end: 20040208

REACTIONS (11)
  - ABASIA [None]
  - ABDOMINAL PAIN [None]
  - BLOOD CREATINE PHOSPHOKINASE INCREASED [None]
  - BLOOD SODIUM DECREASED [None]
  - ESCHERICHIA URINARY TRACT INFECTION [None]
  - LYMPHOCYTE COUNT DECREASED [None]
  - MONOCYTE COUNT INCREASED [None]
  - NEUTROPHIL COUNT INCREASED [None]
  - RENAL IMPAIRMENT [None]
  - RHABDOMYOLYSIS [None]
  - WHITE BLOOD CELL COUNT INCREASED [None]
